FAERS Safety Report 12590713 (Version 1)
Quarter: 2016Q3

REPORT INFORMATION
  Report Type: Spontaneous
  Country: US (occurrence: US)
  Receive Date: 20160726
  Receipt Date: 20160726
  Transmission Date: 20161109
  Serious: Yes (Other)
  Sender: FDA-Public Use
  Company Number: US-ASTRAZENECA-2016SE78155

PATIENT
  Age: 23535 Day
  Sex: Female
  Weight: 102.1 kg

DRUGS (13)
  1. PERCOCET [Concomitant]
     Active Substance: ACETAMINOPHEN\OXYCODONE HYDROCHLORIDE
     Dosage: 1.0DF EVERY 4 - 6 HOURS
     Route: 048
  2. MICROZIDE [Concomitant]
     Active Substance: HYDROCHLOROTHIAZIDE
     Route: 048
  3. NEXIUM [Suspect]
     Active Substance: ESOMEPRAZOLE MAGNESIUM
     Indication: GASTROOESOPHAGEAL REFLUX DISEASE
     Route: 048
  4. GLUCOSAMINE [Concomitant]
     Active Substance: GLUCOSAMINE
     Route: 048
  5. ADVIL [Concomitant]
     Active Substance: IBUPROFEN
     Indication: PAIN
     Dosage: 400.0MG EVERY 4 - 6 HOURS
     Route: 048
  6. COZAAR [Concomitant]
     Active Substance: LOSARTAN POTASSIUM
     Route: 048
  7. MULTIVITAMIN ADULT [Concomitant]
     Route: 048
  8. SYNTHROID [Concomitant]
     Active Substance: LEVOTHYROXINE SODIUM
     Route: 048
  9. OXYCONTIN [Concomitant]
     Active Substance: OXYCODONE HYDROCHLORIDE
     Route: 048
  10. IBRANCE [Suspect]
     Active Substance: PALBOCICLIB
     Route: 048
  11. NORVASC [Suspect]
     Active Substance: AMLODIPINE BESYLATE
     Route: 048
  12. CALCIUM [Concomitant]
     Active Substance: CALCIUM
     Route: 048
  13. ATIVAN [Concomitant]
     Active Substance: LORAZEPAM
     Indication: ANXIETY
     Dosage: 1.0MG EVERY 4 - 6 HOURS
     Route: 048

REACTIONS (1)
  - Breast cancer metastatic [Not Recovered/Not Resolved]

NARRATIVE: CASE EVENT DATE: 20160524
